FAERS Safety Report 18435992 (Version 1)
Quarter: 2020Q4

REPORT INFORMATION
  Report Type: Spontaneous
  Country: US (occurrence: US)
  Receive Date: 20201028
  Receipt Date: 20201028
  Transmission Date: 20210114
  Serious: Yes (Hospitalization)
  Sender: FDA-Public Use
  Company Number: None

PATIENT
  Age: 61 Year
  Sex: Female
  Weight: 80.3 kg

DRUGS (3)
  1. GEMCITABINE HYDROCHLORIDE. [Suspect]
     Active Substance: GEMCITABINE HYDROCHLORIDE
     Dates: end: 20200917
  2. RITUXIMAB (MOAB C2B8 ANTI CD20, CHIMERIC0 [Suspect]
     Active Substance: RITUXIMAB
     Dates: end: 20200917
  3. ELOXATIN [Suspect]
     Active Substance: OXALIPLATIN
     Dates: end: 20200917

REACTIONS (1)
  - Lymphocyte count decreased [None]

NARRATIVE: CASE EVENT DATE: 20201001
